FAERS Safety Report 6536209 (Version 4)
Quarter: 2014Q2

REPORT INFORMATION
  Report Type: Spontaneous
  Country: US (occurrence: None)
  Receive Date: 20080104
  Receipt Date: 20140407
  Transmission Date: 20141212
  Serious: Yes (Hospitalization, Other)
  Sender: FDA-Public Use
  Company Number: 0810001

PATIENT
  Age: 7 Year
  Sex: Male

DRUGS (1)
  1. ORFADIN [Suspect]
     Indication: TYROSINAEMIA
     Dosage: 10 MG IN THE MORNING AND 20 MG EVENING
     Dates: start: 20020711, end: 2013

REACTIONS (17)
  - Liver transplant [None]
  - Developmental delay [None]
  - Porphyria [None]
  - Neuropathy peripheral [None]
  - Pain in extremity [None]
  - Anger [None]
  - Abnormal behaviour [None]
  - Faecal incontinence [None]
  - Encopresis [None]
  - Educational problem [None]
  - Appendicitis [None]
  - Aggression [None]
  - Weight increased [None]
  - Hyperphagia [None]
  - Disturbance in attention [None]
  - Tyrosinaemia [None]
  - Disease progression [None]
